FAERS Safety Report 8795516 (Version 2)
Quarter: 2015Q2

REPORT INFORMATION
  Report Type: Report from Study
  Country: US (occurrence: US)
  Receive Date: 20120917
  Receipt Date: 20150409
  Transmission Date: 20150821
  Serious: Yes (Death)
  Sender: FDA-Public Use
  Company Number: US-ROCHE-1127923

PATIENT
  Sex: Male

DRUGS (21)
  1. ARANESP [Concomitant]
     Active Substance: DARBEPOETIN ALFA
     Route: 065
  2. CALCIUM GLUCONATE. [Concomitant]
     Active Substance: CALCIUM GLUCONATE
     Route: 065
  3. COMPAZINE [Concomitant]
     Active Substance: PROCHLORPERAZINE MALEATE
  4. MAGNESIUM SULFATE. [Concomitant]
     Active Substance: MAGNESIUM SULFATE
     Route: 065
  5. OXALIPLATIN. [Concomitant]
     Active Substance: OXALIPLATIN
     Route: 065
  6. ALOXI [Concomitant]
     Active Substance: PALONOSETRON HYDROCHLORIDE
     Route: 065
  7. ACETAMINOPHEN. [Concomitant]
     Active Substance: ACETAMINOPHEN
     Route: 048
  8. BENADRYL [Concomitant]
     Active Substance: DIPHENHYDRAMINE HYDROCHLORIDE
     Route: 065
  9. PALONOSETRON [Concomitant]
     Active Substance: PALONOSETRON
     Route: 042
  10. AVASTIN [Suspect]
     Active Substance: BEVACIZUMAB
     Indication: HEPATIC CANCER
  11. DARBEPOETIN ALFA [Concomitant]
     Active Substance: DARBEPOETIN ALFA
     Route: 058
  12. FLUOROURACIL. [Concomitant]
     Active Substance: FLUOROURACIL
     Route: 042
  13. ELOXATIN [Concomitant]
     Active Substance: OXALIPLATIN
     Route: 065
  14. DEXAMETHASONE. [Concomitant]
     Active Substance: DEXAMETHASONE
     Route: 042
  15. LEUCOVORIN [Concomitant]
     Active Substance: LEUCOVORIN
     Route: 042
  16. LEUCOVORIN [Concomitant]
     Active Substance: LEUCOVORIN
     Route: 042
  17. FLUOROURACIL. [Concomitant]
     Active Substance: FLUOROURACIL
     Route: 042
  18. TYLENOL [Concomitant]
     Active Substance: ACETAMINOPHEN
     Route: 065
  19. AVASTIN [Suspect]
     Active Substance: BEVACIZUMAB
     Indication: COLON CANCER
     Route: 042
     Dates: start: 20051109
  20. IRINOTECAN [Concomitant]
     Active Substance: IRINOTECAN
     Route: 042
  21. IMODIUM [Concomitant]
     Active Substance: LOPERAMIDE HYDROCHLORIDE

REACTIONS (8)
  - Pain [Unknown]
  - Fatigue [Unknown]
  - Chest pain [Unknown]
  - Headache [Unknown]
  - Death [Fatal]
  - Orthostatic hypotension [Unknown]
  - Diarrhoea [Unknown]
  - Hypophagia [Unknown]
